FAERS Safety Report 5593595-6 (Version None)
Quarter: 2008Q1

REPORT INFORMATION
  Report Type: 
  Country: None (occurrence: None)
  Receive Date: 20080116
  Receipt Date: 20080104
  Transmission Date: 20080703
  Serious: Yes (Death, Hospitalization)
  Sender: FDA-Public Use
  Company Number: GB-ROCHE-540873

PATIENT
  Age: 61 Year
  Sex: Female

DRUGS (8)
  1. CAPECITABINE [Suspect]
     Indication: RECTAL CANCER
     Route: 048
     Dates: start: 20071128, end: 20071212
  2. OXALIPLATIN [Suspect]
     Indication: RECTAL CANCER
     Route: 042
     Dates: start: 20071212, end: 20071212
  3. CETUXIMAB [Suspect]
     Indication: RECTAL CANCER
     Route: 042
     Dates: start: 20071212, end: 20071212
  4. FELODIPINE [Concomitant]
     Route: 048
  5. METOCLOPRAMID [Concomitant]
  6. PROPIOMAZINE [Concomitant]
  7. DALTEPARIN SODIUM [Concomitant]
     Route: 058
  8. KODEIN/PARACETAMOL [Concomitant]

REACTIONS (3)
  - DEHYDRATION [None]
  - DIARRHOEA [None]
  - VOMITING [None]
